FAERS Safety Report 9246198 (Version 1)
Quarter: 2013Q2

REPORT INFORMATION
  Report Type: Spontaneous
  Country: FI (occurrence: FI)
  Receive Date: 20130422
  Receipt Date: 20130422
  Transmission Date: 20140414
  Serious: Yes (Hospitalization, Other)
  Sender: FDA-Public Use
  Company Number: FI-MYLANLABS-2013S1008337

PATIENT
  Age: 69 Year
  Sex: Male

DRUGS (15)
  1. OXALIPLATIN [Suspect]
     Indication: METASTASES TO LIVER
  2. PANTOPRAZOLE [Suspect]
     Indication: PRODUCT USED FOR UNKNOWN INDICATION
  3. LOSARTAN [Suspect]
     Indication: PRODUCT USED FOR UNKNOWN INDICATION
  4. CAPECITABINE [Suspect]
     Indication: METASTASES TO LIVER
  5. BEVACIZUMAB [Suspect]
     Indication: METASTASES TO LIVER
  6. CARVEDILOL [Concomitant]
     Indication: BLOOD PRESSURE INCREASED
  7. LERCANIDIPINE [Concomitant]
     Indication: BLOOD PRESSURE INCREASED
  8. TAMSULOSIN [Concomitant]
     Indication: BENIGN PROSTATIC HYPERPLASIA
  9. CEFTRIAXONE [Concomitant]
     Indication: PRODUCT USED FOR UNKNOWN INDICATION
     Dosage: MEDICATION AFTER LIVER RESECTION
  10. DALTEPARIN [Concomitant]
     Indication: PRODUCT USED FOR UNKNOWN INDICATION
     Dosage: MEDICATION AFTER LIVER RESECTION
  11. OXYCODONE [Concomitant]
     Indication: PRODUCT USED FOR UNKNOWN INDICATION
     Dosage: MEDICATION AFTER LIVER RESECTION
  12. TRAMADOL [Concomitant]
     Indication: PRODUCT USED FOR UNKNOWN INDICATION
     Dosage: MEDICATION AFTER LIVER RESECTION
  13. ONDANSETRON [Concomitant]
     Indication: PRODUCT USED FOR UNKNOWN INDICATION
     Dosage: MEDICATION AFTER LIVER RESECTION
  14. OXAZEPAM [Concomitant]
     Indication: PRODUCT USED FOR UNKNOWN INDICATION
     Dosage: MEDICATION AFTER LIVER RESECTION
  15. SODIUM PICOSULFATE [Concomitant]
     Indication: PRODUCT USED FOR UNKNOWN INDICATION

REACTIONS (10)
  - Leukocytoclastic vasculitis [Unknown]
  - Diarrhoea [Unknown]
  - Pyrexia [Unknown]
  - Pain [Unknown]
  - Joint swelling [Unknown]
  - Heart rate irregular [Unknown]
  - Atrial fibrillation [Unknown]
  - Infection [Unknown]
  - Arthralgia [Unknown]
  - Malaise [Unknown]
